FAERS Safety Report 7235640-8 (Version None)
Quarter: 2011Q1

REPORT INFORMATION
  Report Type: 
  Country: None (occurrence: None)
  Receive Date: 20110120
  Receipt Date: 20101025
  Transmission Date: 20110831
  Serious: No
  Sender: FDA-Public Use
  Company Number: US-BAYER-201022960BCC

PATIENT
  Sex: Female

DRUGS (1)
  1. ALEVE [Suspect]

REACTIONS (4)
  - HYPERSENSITIVITY [None]
  - URTICARIA [None]
  - ERYTHEMA [None]
  - PRURITUS [None]
